FAERS Safety Report 10060690 (Version 1)
Quarter: 2014Q2

REPORT INFORMATION
  Report Type: Report from Study
  Country: CA (occurrence: CA)
  Receive Date: 20140404
  Receipt Date: 20140404
  Transmission Date: 20141212
  Serious: Yes (Death)
  Sender: FDA-Public Use
  Company Number: PHHY2014CA041038

PATIENT
  Sex: Female
  Weight: 88 kg

DRUGS (9)
  1. MIACALCIN [Concomitant]
     Dosage: 200 IU, UNK
  2. CALCIUM [Concomitant]
     Dosage: 1000 MG
     Dates: start: 1989
  3. VITAMIN D [Concomitant]
     Dosage: 800 IU, UNK
     Dates: start: 1989
  4. ACLASTA/ZOLEDRONATE [Suspect]
     Dosage: 5 MG, UNK
     Dates: start: 20091118
  5. ACLASTA/ZOLEDRONATE [Suspect]
     Dosage: 5 MG, UNK
     Dates: start: 2010
  6. FOSAMAX [Suspect]
     Dosage: 70 MG, UNK
     Dates: start: 20111118
  7. DIDROCAL [Concomitant]
     Dosage: 400 MG, DAILY
  8. EVISTA [Concomitant]
     Dosage: 670 MG, DAILY
  9. FORTEO [Concomitant]
     Dosage: 20 MG, DAILY

REACTIONS (2)
  - Death [Fatal]
  - Pyrexia [Unknown]
